FAERS Safety Report 5527889-7 (Version None)
Quarter: 2007Q4

REPORT INFORMATION
  Report Type: 
  Country: None (occurrence: None)
  Receive Date: 20071126
  Receipt Date: 20071126
  Transmission Date: 20080405
  Serious: Yes (Other)
  Sender: FDA-Public Use
  Company Number: None

PATIENT
  Age: 73 Year
  Sex: Female
  Weight: 86.1834 kg

DRUGS (2)
  1. NASONEX [Suspect]
     Indication: ALLERGIC COUGH
     Dosage: ONE SQUIRT IN EACH NOSTRIL  ONCE DAILY  NASAL
     Route: 045
     Dates: start: 20071005, end: 20071013
  2. NASONEX [Suspect]
     Indication: INFLUENZA LIKE ILLNESS
     Dosage: ONE SQUIRT IN EACH NOSTRIL  ONCE DAILY  NASAL
     Route: 045
     Dates: start: 20071005, end: 20071013

REACTIONS (3)
  - EPISTAXIS [None]
  - NASAL DRYNESS [None]
  - THROMBOSIS [None]
